FAERS Safety Report 5194237-4 (Version None)
Quarter: 2006Q4

REPORT INFORMATION
  Report Type: 
  Country: None (occurrence: None)
  Receive Date: 20061228
  Receipt Date: 20051115
  Transmission Date: 20070319
  Serious: Yes (Hospitalization)
  Sender: FDA-Public Use
  Company Number: US-PFIZER INC-2005157057

PATIENT
  Sex: Female

DRUGS (4)
  1. NEURONTIN [Suspect]
     Indication: SCIATICA
     Dosage: TEXT:UNKNOWN-FREQ:UNKNOWN
     Route: 065
  2. NEURONTIN [Suspect]
     Indication: NEUROPATHY PERIPHERAL
  3. NEURONTIN [Suspect]
     Indication: RESTLESS LEGS SYNDROME
  4. ALL OTHER THERAPEUTIC PRODUCTS [Suspect]

REACTIONS (6)
  - COMA [None]
  - DRUG INEFFECTIVE [None]
  - INTENTIONAL OVERDOSE [None]
  - MULTIPLE DRUG OVERDOSE INTENTIONAL [None]
  - SCIATIC NERVE INJURY [None]
  - SUICIDE ATTEMPT [None]
